FAERS Safety Report 10290631 (Version 1)
Quarter: 2014Q3

REPORT INFORMATION
  Report Type: Spontaneous
  Country: US (occurrence: None)
  Receive Date: 20140707
  Receipt Date: 20140707
  Transmission Date: 20150326
  Serious: Yes (Hospitalization)
  Sender: FDA-Public Use
  Company Number: None

PATIENT
  Age: 65 Year
  Sex: Female
  Weight: 56.7 kg

DRUGS (1)
  1. INVOKANA [Suspect]
     Active Substance: CANAGLIFLOZIN
     Indication: DIABETES MELLITUS
     Dosage: 1 PILL  ONCE DAILY --
     Dates: start: 20131013, end: 20131217

REACTIONS (2)
  - Diabetic ketoacidosis [None]
  - Weight decreased [None]

NARRATIVE: CASE EVENT DATE: 20131117
